FAERS Safety Report 12251970 (Version 1)
Quarter: 2016Q2

REPORT INFORMATION
  Report Type: Spontaneous
  Country: US (occurrence: US)
  Receive Date: 20160411
  Receipt Date: 20160411
  Transmission Date: 20160815
  Serious: Yes (Other)
  Sender: FDA-Public Use
  Company Number: US-BEH-2016060981

PATIENT
  Age: 72 Year
  Sex: Female
  Weight: 54 kg

DRUGS (20)
  1. FIBER [Concomitant]
     Active Substance: PSYLLIUM HUSK
  2. LIDOCAINE. [Concomitant]
     Active Substance: LIDOCAINE
  3. FOLIC ACID. [Concomitant]
     Active Substance: FOLIC ACID
  4. HIZENTRA [Suspect]
     Active Substance: HUMAN IMMUNOGLOBULIN G
     Indication: IMMUNODEFICIENCY COMMON VARIABLE
  5. HIZENTRA [Suspect]
     Active Substance: HUMAN IMMUNOGLOBULIN G
     Route: 058
  6. BACTRIM [Concomitant]
     Active Substance: SULFAMETHOXAZOLE\TRIMETHOPRIM
  7. DIPHENHYDRAMINE. [Concomitant]
     Active Substance: DIPHENHYDRAMINE
  8. SODIUM CHLORIDE. [Concomitant]
     Active Substance: SODIUM CHLORIDE
  9. MUCINEX [Concomitant]
     Active Substance: GUAIFENESIN
  10. PAXIL [Concomitant]
     Active Substance: PAROXETINE HYDROCHLORIDE
  11. XANAX [Concomitant]
     Active Substance: ALPRAZOLAM
  12. COENZYME Q10 [Concomitant]
     Active Substance: UBIDECARENONE
  13. EPIPEN [Concomitant]
     Active Substance: EPINEPHRINE
  14. TRAZODONE [Concomitant]
     Active Substance: TRAZODONE HYDROCHLORIDE
  15. ROBITUSSIN (GUAIFENESIN) [Concomitant]
     Active Substance: GUAIFENESIN
  16. MINERAL SUPPLEMENTS [Concomitant]
     Active Substance: MINERALS
  17. HIZENTRA [Suspect]
     Active Substance: HUMAN IMMUNOGLOBULIN G
  18. MULTIVITAMINS AND IRON [Concomitant]
  19. OMEPRAZOLE. [Concomitant]
     Active Substance: OMEPRAZOLE
  20. ACETAMINOPHEN. [Concomitant]
     Active Substance: ACETAMINOPHEN

REACTIONS (4)
  - Fall [Unknown]
  - Clavicle fracture [Unknown]
  - Cough [Unknown]
  - Eye irritation [Unknown]

NARRATIVE: CASE EVENT DATE: 201602
